FAERS Safety Report 4719356-5 (Version None)
Quarter: 2005Q3

REPORT INFORMATION
  Report Type: 
  Country: None (occurrence: None)
  Receive Date: 20050719
  Receipt Date: 20050719
  Transmission Date: 20060218
  Serious: Yes (Disabling)
  Sender: FDA-Public Use
  Company Number: None

PATIENT
  Age: 68 Year
  Sex: Female
  Weight: 74.8435 kg

DRUGS (5)
  1. CIPRO [Suspect]
     Indication: SKIN INFECTION
     Dosage: BID PO ORAL
     Route: 048
     Dates: start: 20050220, end: 20050312
  2. CIPRO [Suspect]
     Indication: SKIN ULCER
     Dosage: BID PO ORAL
     Route: 048
     Dates: start: 20050220, end: 20050312
  3. LEVAQUIN [Suspect]
     Indication: ACINETOBACTER INFECTION
     Dosage: DAILY PO + IV INTRAVENOUS
     Route: 042
     Dates: start: 20050423, end: 20050614
  4. LEVAQUIN [Suspect]
     Indication: SKIN INFECTION
     Dosage: DAILY PO + IV INTRAVENOUS
     Route: 042
     Dates: start: 20050423, end: 20050614
  5. LEVAQUIN [Suspect]
     Indication: STAPHYLOCOCCAL INFECTION
     Dosage: DAILY PO + IV INTRAVENOUS
     Route: 042
     Dates: start: 20050423, end: 20050614

REACTIONS (8)
  - ACTIVITIES OF DAILY LIVING IMPAIRED [None]
  - DRUG INEFFECTIVE [None]
  - IMPAIRED DRIVING ABILITY [None]
  - MUSCLE STRAIN [None]
  - PAIN [None]
  - SHOULDER PAIN [None]
  - TENDON RUPTURE [None]
  - TENDONITIS [None]
